FAERS Safety Report 4327937-6 (Version None)
Quarter: 2004Q1

REPORT INFORMATION
  Report Type: 
  Country: None (occurrence: None)
  Receive Date: 20040325
  Receipt Date: 20040309
  Transmission Date: 20041129
  Serious: Yes (Hospitalization)
  Sender: FDA-Public Use
  Company Number: A03200400659

PATIENT
  Age: 50 Year
  Sex: Female
  Weight: 78.9259 kg

DRUGS (4)
  1. ELOXATIN [Suspect]
     Indication: COLON CANCER
     Dosage: 151 MG EVERY 3-4 WEEKS - INTRAVENOUS NOS
     Route: 042
     Dates: start: 20040227, end: 20040227
  2. CAPECITABINE [Concomitant]
     Indication: METASTASES TO LIVER
  3. REPAGLINIDE [Concomitant]
  4. INSULIN [Concomitant]

REACTIONS (10)
  - ANAEMIA HAEMOLYTIC AUTOIMMUNE [None]
  - COOMBS TEST POSITIVE [None]
  - DIALYSIS [None]
  - FLANK PAIN [None]
  - HAEMATURIA [None]
  - NEUROPATHY [None]
  - POST PROCEDURAL NAUSEA [None]
  - POST PROCEDURAL VOMITING [None]
  - RENAL FAILURE [None]
  - THROMBOCYTOPENIA [None]
